FAERS Safety Report 8110414-4 (Version None)
Quarter: 2012Q1

REPORT INFORMATION
  Report Type: 
  Country: None (occurrence: None)
  Receive Date: 20120202
  Receipt Date: 20120130
  Transmission Date: 20120608
  Serious: Yes (Hospitalization)
  Sender: FDA-Public Use
  Company Number: GB-MERCK-1201GBR00024

PATIENT
  Age: 69 Year
  Sex: Male

DRUGS (13)
  1. CALCIUM CARBONATE AND CHOLECALCIFEROL [Concomitant]
     Route: 048
  2. PRIMIDONE [Concomitant]
     Route: 048
  3. ATORVASTATIN [Concomitant]
     Route: 048
  4. TOLTERODINE [Concomitant]
     Route: 048
  5. GLICLAZIDE [Concomitant]
     Route: 065
  6. PREDNISOLONE [Suspect]
     Route: 048
  7. FUROSEMIDE [Concomitant]
     Route: 048
  8. FLUTICASONE [Concomitant]
     Route: 055
  9. METFORMIN [Concomitant]
     Route: 048
  10. NIFEDIPINE [Concomitant]
     Route: 048
  11. LANSOPRAZOLE [Concomitant]
     Route: 048
  12. FOSAMAX [Suspect]
     Route: 048
     Dates: start: 20110101
  13. AMINOPHYLLINE [Concomitant]
     Route: 048

REACTIONS (5)
  - OESOPHAGEAL ULCER [None]
  - WEIGHT DECREASED [None]
  - GASTRITIS [None]
  - GASTRIC ULCER [None]
  - GASTROOESOPHAGEAL REFLUX DISEASE [None]
